FAERS Safety Report 4440093-9 (Version None)
Quarter: 2004Q3

REPORT INFORMATION
  Report Type: 
  Country: None (occurrence: None)
  Receive Date: 20040902
  Receipt Date: 20040630
  Transmission Date: 20050211
  Serious: Yes (Life-Threatening, Hospitalization)
  Sender: FDA-Public Use
  Company Number: MY-MERCK-0407MYS00001

PATIENT
  Age: 84 Year
  Sex: Female

DRUGS (4)
  1. FOSAMAX [Suspect]
     Indication: OSTEOPOROSIS
     Route: 048
     Dates: start: 19990101, end: 20020101
  2. FOSAMAX [Suspect]
     Route: 048
     Dates: start: 20020101, end: 20040101
  3. VIOXX [Suspect]
     Indication: SPONDYLITIS
     Route: 048
     Dates: start: 20000101, end: 20020601
  4. VIOXX [Suspect]
     Route: 048
     Dates: start: 20020101, end: 20040101

REACTIONS (3)
  - ANAEMIA [None]
  - DUODENAL ULCER [None]
  - GASTRIC ULCER [None]
